FAERS Safety Report 20062637 (Version 1)
Quarter: 2021Q4

REPORT INFORMATION
  Report Type: Spontaneous
  Country: TR (occurrence: None)
  Receive Date: 20211112
  Receipt Date: 20211112
  Transmission Date: 20220303
  Serious: Yes (Hospitalization, Other)
  Sender: FDA-Public Use
  Company Number: 2021A797209

PATIENT
  Age: 58 Year
  Sex: Female

DRUGS (1)
  1. BYETTA [Suspect]
     Active Substance: EXENATIDE
     Route: 065
     Dates: start: 202110

REACTIONS (4)
  - Hyperglycaemia [Recovered/Resolved]
  - Product dose omission issue [Unknown]
  - Device issue [Unknown]
  - Product quality issue [Unknown]
